FAERS Safety Report 4428616-7 (Version None)
Quarter: 2004Q3

REPORT INFORMATION
  Report Type: 
  Country: None (occurrence: None)
  Receive Date: 20040818
  Receipt Date: 20030422
  Transmission Date: 20050211
  Serious: Yes (Other)
  Sender: FDA-Public Use
  Company Number: US-BRISTOL-MYERS SQUIBB COMPANY-12248423

PATIENT
  Age: 70 Year
  Sex: Female
  Weight: 92 kg

DRUGS (8)
  1. TEQUIN [Suspect]
     Indication: LOCALISED INFECTION
     Dosage: 5% DEXTROSE 400 MG/200 ML
     Route: 042
     Dates: start: 20030408, end: 20030511
  2. GLUCOVANCE [Concomitant]
     Indication: DIABETES MELLITUS
  3. AMILORIDE [Concomitant]
  4. CALCIUM [Concomitant]
  5. EVISTA [Concomitant]
  6. GLYBURIDE [Concomitant]
     Indication: DIABETES MELLITUS
     Dosage: 2-5 MG TABLETS AM AND PM
  7. HUMALOG [Concomitant]
     Dosage: SLIDING SCALE
  8. PLAVIX [Concomitant]

REACTIONS (1)
  - DIABETES MELLITUS INADEQUATE CONTROL [None]
